FAERS Safety Report 8727192 (Version 2)
Quarter: 2013Q1

REPORT INFORMATION
  Report Type: Report from Study
  Country: CA (occurrence: CA)
  Receive Date: 20120816
  Receipt Date: 20130115
  Transmission Date: 20140127
  Serious: Yes (Other)
  Sender: FDA-Public Use
  Company Number: CA-ROCHE-1101059

PATIENT
  Sex: Female
  Weight: 125.76 kg

DRUGS (5)
  1. RITUXIMAB [Suspect]
     Indication: RHEUMATOID ARTHRITIS
     Dosage: FREQUENCY DAY1, 15
     Route: 042
     Dates: start: 20120213
  2. SYNTHROID [Concomitant]
     Indication: HYPOTHYROIDISM
  3. PANTOLOC [Concomitant]
  4. REACTINE (CANADA) [Concomitant]
     Indication: HYPERSENSITIVITY
     Route: 065
  5. VENTOLIN [Concomitant]
     Route: 055

REACTIONS (2)
  - Dizziness [Not Recovered/Not Resolved]
  - Presyncope [Unknown]
